FAERS Safety Report 20372920 (Version 3)
Quarter: 2022Q2

REPORT INFORMATION
  Report Type: Spontaneous
  Country: US (occurrence: US)
  Receive Date: 20220125
  Receipt Date: 20220414
  Transmission Date: 20220721
  Serious: No
  Sender: FDA-Public Use
  Company Number: US-Biofrontera-2022BIO00002

PATIENT
  Age: 50 Year
  Sex: Female

DRUGS (1)
  1. AMELUZ [Suspect]
     Active Substance: AMINOLEVULINIC ACID HYDROCHLORIDE
     Indication: Actinic keratosis
     Route: 050
     Dates: start: 20211213, end: 20211213

REACTIONS (4)
  - Application site swelling [Recovered/Resolved]
  - Application site papules [Recovered/Resolved]
  - Application site pustules [Recovered/Resolved]
  - Off label use [Recovered/Resolved]

NARRATIVE: CASE EVENT DATE: 20211213
